FAERS Safety Report 9249451 (Version 1)
Quarter: 2013Q2

REPORT INFORMATION
  Report Type: Spontaneous
  Country: IT (occurrence: IT)
  Receive Date: 20130423
  Receipt Date: 20130423
  Transmission Date: 20140414
  Serious: Yes (Hospitalization)
  Sender: FDA-Public Use
  Company Number: IT-TEVA-398232ISR

PATIENT
  Age: 65 Year
  Sex: Male

DRUGS (2)
  1. ATENOLOL [Suspect]
     Dosage: 2 DOSAGE FORMS DAILY;
     Dates: start: 20121219, end: 20121219
  2. NORVASC [Concomitant]

REACTIONS (4)
  - Sweating fever [Not Recovered/Not Resolved]
  - Blood pressure decreased [Not Recovered/Not Resolved]
  - Presyncope [Not Recovered/Not Resolved]
  - Accidental overdose [Not Recovered/Not Resolved]
